FAERS Safety Report 11547951 (Version 2)
Quarter: 2016Q3

REPORT INFORMATION
  Report Type: Spontaneous
  Country: US (occurrence: US)
  Receive Date: 20150924
  Receipt Date: 20160906
  Transmission Date: 20161109
  Serious: No
  Sender: FDA-Public Use
  Company Number: US-AMNEAL PHARMACEUTICALS-2015AMN00043

PATIENT
  Sex: Female
  Weight: 82.54 kg

DRUGS (13)
  1. GABAPENTIN. [Suspect]
     Active Substance: GABAPENTIN
     Indication: ARTHRITIS
  2. ENBREL [Suspect]
     Active Substance: ETANERCEPT
     Dosage: 50 MG/ML, 1X/MONTH
     Dates: start: 2015
  3. NEXIUM [Concomitant]
     Active Substance: ESOMEPRAZOLE MAGNESIUM
     Indication: GASTROOESOPHAGEAL REFLUX DISEASE
     Dosage: 40 MG, 1X/DAY
     Dates: start: 2006
  4. MORPHINE [Concomitant]
     Active Substance: MORPHINE
     Indication: PAIN
     Dosage: 60 MG, 2X/DAY
     Dates: start: 2006
  5. VITAMIN B12 INJECTION [Concomitant]
     Indication: VITAMIN B12 DEFICIENCY
     Dosage: 1000 MCG, 1X/MONTH
  6. LYRICA [Suspect]
     Active Substance: PREGABALIN
     Indication: FORMICATION
  7. METHOTREXATE. [Concomitant]
     Active Substance: METHOTREXATE
     Indication: ARTHRITIS
     Dosage: 2.5 MG, 1X/WEEK
     Dates: start: 201505
  8. LYRICA [Suspect]
     Active Substance: PREGABALIN
     Indication: NEUROPATHY PERIPHERAL
     Dosage: 300 MG, 3X/DAY
     Dates: start: 201501
  9. PREDNISOLONE. [Concomitant]
     Active Substance: PREDNISOLONE
     Indication: ARTHRITIS
     Dosage: 2 MG, 1X/DAY
  10. OXYCODONE [Concomitant]
     Active Substance: OXYCODONE
     Indication: PAIN
     Dosage: 15 MG, 1X/DAY
     Dates: start: 2006
  11. GABAPENTIN. [Suspect]
     Active Substance: GABAPENTIN
     Indication: NEUROPATHY PERIPHERAL
     Dosage: 1 CAPSULES, 3X/DAY
     Route: 048
     Dates: start: 2013
  12. MAGOXIDE [Concomitant]
     Indication: MAGNESIUM DEFICIENCY
     Dosage: 400 MG, 2X/DAY
     Dates: start: 201501
  13. LOVASTATIN. [Concomitant]
     Active Substance: LOVASTATIN
     Dosage: 1 TABLETS, 1X/DAY

REACTIONS (1)
  - Drug ineffective [Unknown]
